FAERS Safety Report 16957006 (Version 1)
Quarter: 2019Q4

REPORT INFORMATION
  Report Type: Spontaneous
  Country: US (occurrence: US)
  Receive Date: 20190905
  Receipt Date: 20190905
  Transmission Date: 20200122
  Serious: No
  Sender: FDA-Public Use
  Company Number: None

PATIENT
  Age: 72 Year
  Sex: Female

DRUGS (1)
  1. HUMIRA [Suspect]
     Active Substance: ADALIMUMAB
     Indication: CROHN^S DISEASE
     Route: 058
     Dates: start: 201808

REACTIONS (6)
  - Upper-airway cough syndrome [None]
  - Alopecia [None]
  - Eye swelling [None]
  - Drug ineffective [None]
  - Eczema eyelids [None]
  - Ocular hyperaemia [None]

NARRATIVE: CASE EVENT DATE: 201808
